FAERS Safety Report 10690590 (Version 3)
Quarter: 2015Q1

REPORT INFORMATION
  Report Type: Report from Study
  Country: US (occurrence: US)
  Receive Date: 20150105
  Receipt Date: 20150304
  Transmission Date: 20150720
  Serious: Yes (Death, Other)
  Sender: FDA-Public Use
  Company Number: US-BAYER-2014-191365

PATIENT
  Age: 58 Year
  Sex: Male
  Weight: 60 kg

DRUGS (5)
  1. VITAMIN D [COLECALCIFEROL] [Concomitant]
  2. DOCUSATE [Concomitant]
     Active Substance: DOCUSATE
  3. NEXAVAR [Suspect]
     Active Substance: SORAFENIB
     Indication: HEPATIC CANCER
     Dosage: 400 MG, BID
     Route: 048
     Dates: start: 20141213, end: 20150216
  4. CENTRUM [Concomitant]
     Active Substance: VITAMINS
  5. NOVOLOG [Concomitant]
     Active Substance: INSULIN ASPART

REACTIONS (11)
  - Asthenia [None]
  - Blood pressure increased [None]
  - Decreased appetite [None]
  - Weight decreased [None]
  - Fatigue [None]
  - Vomiting [None]
  - Nausea [Recovering/Resolving]
  - Death [Fatal]
  - Dry mouth [None]
  - Fall [None]
  - Disorientation [None]

NARRATIVE: CASE EVENT DATE: 201502
